FAERS Safety Report 17083731 (Version 3)
Quarter: 2019Q4

REPORT INFORMATION
  Report Type: Spontaneous
  Country: US (occurrence: US)
  Receive Date: 20191127
  Receipt Date: 20191213
  Transmission Date: 20200122
  Serious: No
  Sender: FDA-Public Use
  Company Number: US-BRISTOL-MYERS SQUIBB COMPANY-BMS-2019-114045

PATIENT
  Sex: Female
  Weight: 68.04 kg

DRUGS (2)
  1. WARFARIN [Suspect]
     Active Substance: WARFARIN
     Indication: THROMBOSIS
     Dosage: 5 MILLIGRAM
     Route: 065
     Dates: start: 2019
  2. ELIQUIS [Suspect]
     Active Substance: APIXABAN
     Indication: THROMBOSIS PROPHYLAXIS
     Dosage: UNK UNK, BID
     Route: 048
     Dates: start: 2018, end: 2019

REACTIONS (3)
  - Rash [Unknown]
  - Dermatitis allergic [Unknown]
  - Skin reaction [Unknown]
